FAERS Safety Report 9611023 (Version 1)
Quarter: 2013Q4

REPORT INFORMATION
  Report Type: Spontaneous
  Country: FR (occurrence: FR)
  Receive Date: 20131009
  Receipt Date: 20131009
  Transmission Date: 20140711
  Serious: Yes (Life-Threatening, Hospitalization)
  Sender: FDA-Public Use
  Company Number: FR-GLAXOSMITHKLINE-B0926652A

PATIENT
  Age: 39 Year
  Sex: Female

DRUGS (4)
  1. MIVACRON [Suspect]
     Indication: GENERAL ANAESTHESIA
     Route: 042
     Dates: start: 20130214, end: 20130214
  2. PROPOFOL [Suspect]
     Indication: GENERAL ANAESTHESIA
     Route: 042
     Dates: start: 20130214, end: 20130214
  3. SUFENTANIL [Suspect]
     Indication: GENERAL ANAESTHESIA
     Route: 042
     Dates: start: 20130214, end: 20130214
  4. CEFUROXIME [Suspect]
     Route: 042
     Dates: start: 20130214

REACTIONS (5)
  - Anaphylactic shock [Recovered/Resolved]
  - Erythema [Recovered/Resolved]
  - Tachycardia [Recovered/Resolved]
  - Dyspnoea [Recovered/Resolved]
  - Rales [Recovered/Resolved]
